FAERS Safety Report 9157107 (Version 1)
Quarter: 2013Q1

REPORT INFORMATION
  Report Type: Report from Study
  Country: CO (occurrence: CO)
  Receive Date: 20130312
  Receipt Date: 20130312
  Transmission Date: 20140127
  Serious: Yes (Life-Threatening)
  Sender: FDA-Public Use
  Company Number: CO-SANOFI-AVENTIS-2013SA024024

PATIENT
  Age: 44 Year
  Sex: Female

DRUGS (8)
  1. INSULIN GLARGINE [Suspect]
     Indication: DIABETES MELLITUS
     Route: 065
     Dates: start: 2012
  2. INSULIN GLARGINE [Suspect]
     Indication: DIABETES MELLITUS
     Dosage: DOSE INCREASED
     Route: 065
  3. INSULIN GLULISINE [Suspect]
     Indication: DIABETES MELLITUS
     Route: 058
     Dates: start: 2012
  4. INSULIN GLULISINE [Suspect]
     Indication: DIABETES MELLITUS
     Dosage: DOSE INCREASED
     Route: 058
  5. LOSARTAN [Concomitant]
     Indication: HYPERTENSION
     Route: 048
  6. FUROSEMIDE [Concomitant]
     Indication: HYPERTENSION
     Route: 048
  7. OMEPRAZOLE [Concomitant]
     Route: 048
  8. METOPROLOL [Concomitant]
     Indication: HYPERTENSION
     Route: 048

REACTIONS (9)
  - Skin ulcer [Not Recovered/Not Resolved]
  - Oedema [Not Recovered/Not Resolved]
  - Erythema [Not Recovered/Not Resolved]
  - Feeling hot [Not Recovered/Not Resolved]
  - Pyrexia [Not Recovered/Not Resolved]
  - Hypoglycaemia [Not Recovered/Not Resolved]
  - Tachycardia [Not Recovered/Not Resolved]
  - Nasopharyngitis [Not Recovered/Not Resolved]
  - Dizziness [Not Recovered/Not Resolved]
